FAERS Safety Report 19883999 (Version 18)
Quarter: 2023Q2

REPORT INFORMATION
  Report Type: Spontaneous
  Country: GB (occurrence: GB)
  Receive Date: 20210927
  Receipt Date: 20230414
  Transmission Date: 20230722
  Serious: Yes (Death, Life-Threatening, Hospitalization, Other)
  Sender: FDA-Public Use
  Company Number: GB-ROCHE-2677215

PATIENT
  Age: 71 Year
  Sex: Female
  Weight: 54 kg

DRUGS (60)
  1. AMLODIPINE [Suspect]
     Active Substance: AMLODIPINE BESYLATE
     Indication: Hypertension
     Route: 065
  2. AMLODIPINE [Suspect]
     Active Substance: AMLODIPINE BESYLATE
     Route: 065
  3. AMLODIPINE [Suspect]
     Active Substance: AMLODIPINE BESYLATE
     Route: 065
  4. AMLODIPINE [Suspect]
     Active Substance: AMLODIPINE BESYLATE
     Route: 065
  5. CIPROFLOXACIN [Suspect]
     Active Substance: CIPROFLOXACIN
     Indication: Prophylaxis
     Dates: start: 20200827
  6. LINEZOLID [Suspect]
     Active Substance: LINEZOLID
     Indication: Neutropenic sepsis
     Route: 065
     Dates: start: 20200830
  7. VORICONAZOLE [Suspect]
     Active Substance: VORICONAZOLE
     Indication: Neutropenic sepsis
     Route: 065
     Dates: start: 20200830
  8. AMOXICILLIN [Suspect]
     Active Substance: AMOXICILLIN
     Indication: Non-small cell lung cancer
     Dates: start: 20200810, end: 20200816
  9. AMOXICILLIN [Suspect]
     Active Substance: AMOXICILLIN
     Dosage: FOUR TIMES/DAY
     Dates: start: 20200810, end: 20200816
  10. ATEZOLIZUMAB [Suspect]
     Active Substance: ATEZOLIZUMAB
     Indication: Transitional cell carcinoma
     Dosage: MOST RECENT DOSE OF ATEZOLIZUMAB PRIOR TO ADVERSE EVENT (NAUSEA) ONSET ON 19/AUG/2020.
     Route: 041
     Dates: start: 20200729
  11. ATEZOLIZUMAB [Suspect]
     Active Substance: ATEZOLIZUMAB
     Indication: Non-small cell lung cancer
     Route: 042
     Dates: start: 20200819
  12. ATEZOLIZUMAB [Suspect]
     Active Substance: ATEZOLIZUMAB
     Indication: Small cell lung cancer
  13. ATEZOLIZUMAB [Suspect]
     Active Substance: ATEZOLIZUMAB
  14. ATEZOLIZUMAB [Suspect]
     Active Substance: ATEZOLIZUMAB
     Route: 041
     Dates: start: 20200729
  15. CARBOPLATIN [Suspect]
     Active Substance: CARBOPLATIN
     Indication: Non-small cell lung cancer
     Route: 065
     Dates: start: 20200729
  16. CLOPIDOGREL [Suspect]
     Active Substance: CLOPIDOGREL BISULFATE
     Indication: Hypertension
     Route: 065
  17. CYCLIZINE [Suspect]
     Active Substance: CYCLIZINE
     Indication: Vomiting
     Dosage: TIME INTERVAL:
  18. CYCLIZINE [Suspect]
     Active Substance: CYCLIZINE
     Indication: Neutropenic sepsis
     Dosage: 1 IN 0.25 DAY
  19. CYCLIZINE [Suspect]
     Active Substance: CYCLIZINE
     Route: 065
  20. DEXAMETHASONE [Suspect]
     Active Substance: DEXAMETHASONE
     Indication: Dysphagia
     Dates: start: 20200826
  21. DEXAMETHASONE [Suspect]
     Active Substance: DEXAMETHASONE
     Indication: Prophylaxis
  22. BENZYDAMINE [Suspect]
     Active Substance: BENZYDAMINE
     Indication: Prophylaxis
     Route: 065
     Dates: start: 20200819
  23. ETOPOSIDE [Suspect]
     Active Substance: ETOPOSIDE
     Indication: Non-small cell lung cancer
     Route: 048
     Dates: start: 20200730
  24. ETOPOSIDE [Suspect]
     Active Substance: ETOPOSIDE
     Dates: start: 20200729
  25. FLUCONAZOLE [Suspect]
     Active Substance: FLUCONAZOLE
     Indication: Candida infection
     Route: 065
  26. FORMOTEROL [Suspect]
     Active Substance: FORMOTEROL
     Indication: Hypertension
     Dates: start: 20200301
  27. FORMOTEROL [Suspect]
     Active Substance: FORMOTEROL
     Dates: start: 20200301
  28. FORMOTEROL [Suspect]
     Active Substance: FORMOTEROL
     Dates: start: 20200301
  29. LACTULOSE [Suspect]
     Active Substance: LACTULOSE
     Indication: Prophylaxis
  30. LACTULOSE [Suspect]
     Active Substance: LACTULOSE
  31. LACTULOSE [Suspect]
     Active Substance: LACTULOSE
     Route: 065
  32. LACTULOSE [Suspect]
     Active Substance: LACTULOSE
  33. LANSOPRAZOLE [Suspect]
     Active Substance: LANSOPRAZOLE
     Indication: Prophylaxis
     Route: 065
     Dates: start: 20170101
  34. MORPHINE SULFATE [Suspect]
     Active Substance: MORPHINE SULFATE
     Indication: Pain
     Route: 065
     Dates: start: 20200825
  35. MORPHINE SULFATE [Suspect]
     Active Substance: MORPHINE SULFATE
     Indication: Prophylaxis
     Route: 065
     Dates: start: 20200731
  36. MORPHINE SULFATE [Suspect]
     Active Substance: MORPHINE SULFATE
     Route: 065
     Dates: start: 20200727
  37. MORPHINE SULFATE [Suspect]
     Active Substance: MORPHINE SULFATE
     Dates: start: 20200731
  38. MORPHINE SULFATE [Suspect]
     Active Substance: MORPHINE SULFATE
     Indication: Pain
     Dates: start: 20200727
  39. MORPHINE SULFATE [Suspect]
     Active Substance: MORPHINE SULFATE
     Dates: start: 20200825
  40. MORPHINE SULFATE [Suspect]
     Active Substance: MORPHINE SULFATE
     Dates: start: 20200731
  41. ALBUTEROL [Suspect]
     Active Substance: ALBUTEROL
     Indication: Prophylaxis
     Route: 065
  42. ACETAMINOPHEN\CODEINE PHOSPHATE [Suspect]
     Active Substance: ACETAMINOPHEN\CODEINE PHOSPHATE
     Indication: Headache
     Route: 065
  43. ACETAMINOPHEN\CODEINE PHOSPHATE [Suspect]
     Active Substance: ACETAMINOPHEN\CODEINE PHOSPHATE
     Indication: Pain
     Route: 065
  44. ACETAMINOPHEN\CODEINE PHOSPHATE [Suspect]
     Active Substance: ACETAMINOPHEN\CODEINE PHOSPHATE
  45. ACETAMINOPHEN\CODEINE PHOSPHATE [Suspect]
     Active Substance: ACETAMINOPHEN\CODEINE PHOSPHATE
     Route: 065
  46. SPIRIVA [Suspect]
     Active Substance: TIOTROPIUM BROMIDE MONOHYDRATE
     Indication: Chronic obstructive pulmonary disease
     Route: 065
  47. ZOPICLONE [Suspect]
     Active Substance: ZOPICLONE
     Indication: Prophylaxis
     Dates: start: 20200731
  48. VENLAFAXINE [Suspect]
     Active Substance: VENLAFAXINE HYDROCHLORIDE
     Indication: Depression
     Route: 065
  49. VENLAFAXINE [Suspect]
     Active Substance: VENLAFAXINE HYDROCHLORIDE
     Route: 065
  50. VENLAFAXINE [Suspect]
     Active Substance: VENLAFAXINE HYDROCHLORIDE
     Route: 065
     Dates: start: 20200820
  51. VENLAFAXINE [Suspect]
     Active Substance: VENLAFAXINE HYDROCHLORIDE
     Route: 065
     Dates: start: 20200820
  52. MAGNESIUM [Concomitant]
     Active Substance: MAGNESIUM
     Indication: Product used for unknown indication
     Dates: start: 20200819, end: 20200819
  53. METOCLOPRAMIDE [Concomitant]
     Active Substance: METOCLOPRAMIDE
     Indication: Vomiting
     Dates: start: 20200819, end: 20200819
  54. PHOSPHATE ACID [Concomitant]
     Indication: Product used for unknown indication
     Route: 065
     Dates: start: 20200825, end: 20200825
  55. PHOSPHATE ACID [Concomitant]
  56. PHOSPHATE ACID [Concomitant]
     Dates: start: 20200825, end: 20200825
  57. SANDO-K [Concomitant]
     Indication: Prophylaxis
     Route: 065
     Dates: start: 20200828, end: 20200901
  58. SANDO-K [Concomitant]
     Dates: start: 20200819
  59. SANDO-K [Concomitant]
     Dates: start: 20200819
  60. ONDANSETRON [Concomitant]
     Active Substance: ONDANSETRON
     Indication: Product used for unknown indication
     Dates: start: 20200729, end: 20200729

REACTIONS (31)
  - Death [Fatal]
  - Death [Fatal]
  - Hypomagnesaemia [Fatal]
  - Nervous system disorder [Fatal]
  - Asthenia [Fatal]
  - Neutrophil count decreased [Fatal]
  - Gait disturbance [Fatal]
  - Product use in unapproved indication [Unknown]
  - Neutropenic sepsis [Not Recovered/Not Resolved]
  - Dysphagia [Not Recovered/Not Resolved]
  - Anaemia [Recovered/Resolved]
  - Hypokalaemia [Recovered/Resolved]
  - Balance disorder [Not Recovered/Not Resolved]
  - Decreased appetite [Unknown]
  - Nausea [Recovered/Resolved]
  - Asthenia [Unknown]
  - Decreased appetite [Recovered/Resolved]
  - Mucosal inflammation [Not Recovered/Not Resolved]
  - Dehydration [Not Recovered/Not Resolved]
  - Hypomagnesaemia [Recovered/Resolved]
  - Dyspnoea [Not Recovered/Not Resolved]
  - Constipation [Not Recovered/Not Resolved]
  - Productive cough [Not Recovered/Not Resolved]
  - Skin candida [Not Recovered/Not Resolved]
  - Vomiting [Not Recovered/Not Resolved]
  - Diarrhoea [Recovered/Resolved]
  - Mouth ulceration [Recovered/Resolved]
  - Depression [Not Recovered/Not Resolved]
  - Headache [Not Recovered/Not Resolved]
  - Candida infection [Not Recovered/Not Resolved]
  - Anaemia [Recovered/Resolved]

NARRATIVE: CASE EVENT DATE: 20200730
